FAERS Safety Report 4988486-5 (Version None)
Quarter: 2006Q2

REPORT INFORMATION
  Report Type: 
  Country: None (occurrence: None)
  Receive Date: 20060426
  Receipt Date: 20060410
  Transmission Date: 20061013
  Serious: Yes (Hospitalization)
  Sender: FDA-Public Use
  Company Number: US200604001648

PATIENT
  Age: 101 Year
  Sex: Female

DRUGS (1)
  1. SYMBAX(OLANZAPINE AND FLUOXETINE HYDROCHLORIDE) CAPSULE [Suspect]
     Indication: DEPRESSION
     Dosage: 6/25 MG
     Dates: start: 20050101

REACTIONS (3)
  - FALL [None]
  - JOINT SPRAIN [None]
  - PNEUMONIA [None]
